FAERS Safety Report 15523471 (Version 1)
Quarter: 2018Q4

REPORT INFORMATION
  Report Type: Spontaneous
  Country: PT (occurrence: PT)
  Receive Date: 20181018
  Receipt Date: 20181018
  Transmission Date: 20190205
  Serious: Yes (Other)
  Sender: FDA-Public Use
  Company Number: PT-TEVA-2018-PT-965767

PATIENT
  Age: 38 Year
  Sex: Female

DRUGS (3)
  1. LISONORM [Concomitant]
     Dosage: TAKEN AT NIGHT
     Route: 048
  2. HARMONET [Concomitant]
     Active Substance: ETHINYL ESTRADIOL\GESTODENE
     Dosage: TAKEN AT BEDTIME
     Route: 048
  3. LISINOPRIL RATIOPHARM [Suspect]
     Active Substance: LISINOPRIL
     Dosage: 20 MILLIGRAM DAILY; TAKEN IN THE MORNING
     Route: 048
     Dates: start: 20180927

REACTIONS (2)
  - Eye swelling [Recovered/Resolved]
  - Drug hypersensitivity [Recovered/Resolved]
